FAERS Safety Report 8599252-6 (Version None)
Quarter: 2012Q3

REPORT INFORMATION
  Report Type: 
  Country: None (occurrence: None)
  Receive Date: 20120816
  Receipt Date: 20120321
  Transmission Date: 20120928
  Serious: No
  Sender: FDA-Public Use
  Company Number: US-AMGEN-USASP2012018526

PATIENT

DRUGS (1)
  1. NEUPOGEN [Suspect]
     Indication: CHEMOTHERAPY
     Dosage: UNK

REACTIONS (2)
  - INFECTION SUSCEPTIBILITY INCREASED [None]
  - WHITE BLOOD CELL COUNT ABNORMAL [None]
